FAERS Safety Report 11723427 (Version 1)
Quarter: 2015Q4

REPORT INFORMATION
  Report Type: Spontaneous
  Country: US (occurrence: None)
  Receive Date: 20151110
  Receipt Date: 20151110
  Transmission Date: 20160304
  Serious: Yes (Disabling, Other)
  Sender: FDA-Public Use
  Company Number: None

PATIENT
  Age: 63 Year
  Sex: Female
  Weight: 65.32 kg

DRUGS (3)
  1. BRACE ON LEFT FOOT [Concomitant]
  2. VITAMINS NOS [Concomitant]
     Active Substance: VITAMINS
  3. LEVAQUIN [Suspect]
     Active Substance: LEVOFLOXACIN
     Indication: PNEUMONIA
     Dosage: 5 DOSAGE UNITS
     Route: 048
     Dates: start: 20131009, end: 20131010

REACTIONS (3)
  - Tendon rupture [None]
  - Foot fracture [None]
  - Fall [None]

NARRATIVE: CASE EVENT DATE: 20131011
